FAERS Safety Report 12824177 (Version 1)
Quarter: 2016Q4

REPORT INFORMATION
  Report Type: Spontaneous
  Country: US (occurrence: US)
  Receive Date: 20161006
  Receipt Date: 20161006
  Transmission Date: 20170207
  Serious: Yes (Other)
  Sender: FDA-Public Use
  Company Number: US-THE MENTHOLATUM COMPANY-1058062

PATIENT
  Sex: Female
  Weight: 61.36 kg

DRUGS (1)
  1. ROHTO COOL MAX [Suspect]
     Active Substance: NAPHAZOLINE HYDROCHLORIDE\POLYSORBATE 80
     Route: 047
     Dates: start: 20160915, end: 20160915

REACTIONS (2)
  - Eye irritation [Recovered/Resolved]
  - Ocular hyperaemia [Not Recovered/Not Resolved]

NARRATIVE: CASE EVENT DATE: 20160915
